FAERS Safety Report 5242955-1 (Version None)
Quarter: 2007Q1

REPORT INFORMATION
  Report Type: 
  Country: None (occurrence: None)
  Receive Date: 20070215
  Receipt Date: 20070126
  Transmission Date: 20070707
  Serious: Yes (Hospitalization)
  Sender: FDA-Public Use
  Company Number: 070102603

PATIENT
  Age: 30 Year
  Sex: Male

DRUGS (1)
  1. DELSYM [Suspect]
     Indication: INTENTIONAL OVERDOSE
     Dosage: BTL, 24HR PERIOD, ORAL
     Route: 048
     Dates: start: 20070123, end: 20070124

REACTIONS (3)
  - AGGRESSION [None]
  - DRUG ABUSER [None]
  - HALLUCINATION [None]
